FAERS Safety Report 18694474 (Version 1)
Quarter: 2021Q1

REPORT INFORMATION
  Report Type: Spontaneous
  Country: CA (occurrence: CA)
  Receive Date: 20210104
  Receipt Date: 20210104
  Transmission Date: 20210419
  Serious: Yes (Life-Threatening, Other)
  Sender: FDA-Public Use
  Company Number: CA-ADIENNEP-2020AD000665

PATIENT
  Age: 9 Year
  Sex: Male

DRUGS (24)
  1. MELPHALAN. [Suspect]
     Active Substance: MELPHALAN
     Indication: CHEMOTHERAPY
     Route: 042
  2. FAMOTIDINE. [Concomitant]
     Active Substance: FAMOTIDINE
     Dosage: ()
  3. FLUCONAZOLE. [Concomitant]
     Active Substance: FLUCONAZOLE
  4. ONDANSETRON [Concomitant]
     Active Substance: ONDANSETRON
  5. FLUDARABINE [Suspect]
     Active Substance: FLUDARABINE PHOSPHATE
     Indication: CHEMOTHERAPY
     Route: 042
  6. DIPHENHYDRAMINE. [Concomitant]
     Active Substance: DIPHENHYDRAMINE
  7. CALCIUM CARBONATE WITH VITAMIN D [Concomitant]
     Active Substance: CALCIUM CARBONATE\ERGOCALCIFEROL
  8. KETAMINE [Concomitant]
     Active Substance: KETAMINE
  9. NALOXONE [Concomitant]
     Active Substance: NALOXONE
  10. AMLODIPINE [Concomitant]
     Active Substance: AMLODIPINE BESYLATE
     Dosage: ()
  11. HYDROXYZINE [Concomitant]
     Active Substance: HYDROXYZINE HYDROCHLORIDE
  12. TRIMETHOPRIM ? SULFAMETHOXAZOLE [Concomitant]
     Active Substance: SULFAMETHOXAZOLE\TRIMETHOPRIM
  13. DEXAMETHASONE. [Concomitant]
     Active Substance: DEXAMETHASONE
  14. GABAPENTIN. [Concomitant]
     Active Substance: GABAPENTIN
  15. HYDROMORPHONE [Concomitant]
     Active Substance: HYDROMORPHONE
  16. NIFEDIPINE. [Concomitant]
     Active Substance: NIFEDIPINE
     Dosage: ()
  17. OLANZAPINE. [Concomitant]
     Active Substance: OLANZAPINE
  18. CALCIUM CARBONATE WITH VITAMIN D [Concomitant]
     Active Substance: CALCIUM CARBONATE\ERGOCALCIFEROL
  19. THIOTEPA. [Suspect]
     Active Substance: THIOTEPA
     Indication: CHEMOTHERAPY
     Dosage: (170MG)
  20. TACROLIMUS. [Suspect]
     Active Substance: TACROLIMUS
     Route: 042
  21. FUROSEMIDE. [Concomitant]
     Active Substance: FUROSEMIDE
  22. LEVETIRACETAM. [Concomitant]
     Active Substance: LEVETIRACETAM
     Dosage: ()
  23. METHYLPREDNISOLONE. [Concomitant]
     Active Substance: METHYLPREDNISOLONE
  24. URSODEOXYCHOLIC ACID [Concomitant]
     Active Substance: URSODIOL

REACTIONS (3)
  - Febrile neutropenia [Recovered/Resolved]
  - Aplasia [Recovered/Resolved]
  - Chills [Recovered/Resolved]
